FAERS Safety Report 9791249 (Version 1)
Quarter: 2014Q1

REPORT INFORMATION
  Report Type: Spontaneous
  Country: US (occurrence: US)
  Receive Date: 20140101
  Receipt Date: 20140101
  Transmission Date: 20141002
  Serious: Yes (Hospitalization)
  Sender: FDA-Public Use
  Company Number: US-BIOGENIDEC-2013BI123682

PATIENT
  Age: 32 Year
  Sex: Female

DRUGS (1)
  1. AVONEX [Suspect]
     Indication: MULTIPLE SCLEROSIS
     Route: 030
     Dates: start: 20090814

REACTIONS (4)
  - Urinary tract infection [Unknown]
  - Central nervous system lesion [Recovered/Resolved]
  - Multiple sclerosis relapse [Unknown]
  - Road traffic accident [Recovered/Resolved]
